FAERS Safety Report 6246752-X (Version None)
Quarter: 2009Q2

REPORT INFORMATION
  Report Type: 
  Country: None (occurrence: None)
  Receive Date: 20090626
  Receipt Date: 20090617
  Transmission Date: 20091009
  Serious: Yes (Other)
  Sender: FDA-Public Use
  Company Number: BR-PFIZER INC-2009228888

PATIENT
  Age: 27 Year

DRUGS (1)
  1. DEPO-PROVERA [Suspect]
     Dosage: 150 MG, EVERY 90 DAYS
     Route: 030
     Dates: start: 20081030

REACTIONS (9)
  - ALOPECIA [None]
  - ANXIETY [None]
  - DRUG INEFFECTIVE [None]
  - FEELING OF DESPAIR [None]
  - HEADACHE [None]
  - HYPOAESTHESIA [None]
  - INAPPROPRIATE SCHEDULE OF DRUG ADMINISTRATION [None]
  - MENORRHAGIA [None]
  - SKIN DISORDER [None]
